FAERS Safety Report 23980994 (Version 1)
Quarter: 2024Q2

REPORT INFORMATION
  Report Type: Spontaneous
  Country: FR (occurrence: FR)
  Receive Date: 20240617
  Receipt Date: 20240617
  Transmission Date: 20240715
  Serious: Yes (Congenital Anomaly, Other)
  Sender: FDA-Public Use
  Company Number: None

PATIENT
  Sex: Female
  Weight: 2.91 kg

DRUGS (1)
  1. KEPPRA [Suspect]
     Active Substance: LEVETIRACETAM
     Indication: Product used for unknown indication
     Dosage: 1000 MILLIGRAM, 1 DAY (GESTATIONAL AGE 0?39.2 WEEKS)
     Route: 064
     Dates: start: 2023, end: 20231019

REACTIONS (6)
  - Agitation neonatal [Recovered/Resolved]
  - Epilepsy [Not Recovered/Not Resolved]
  - Tremor [Not Recovered/Not Resolved]
  - Myoclonus [Recovered/Resolved]
  - Maternal exposure during pregnancy [Unknown]
  - Maternal exposure before pregnancy [Unknown]

NARRATIVE: CASE EVENT DATE: 20230101
